FAERS Safety Report 11518451 (Version 1)
Quarter: 2015Q3

REPORT INFORMATION
  Report Type: Spontaneous
  Country: CN (occurrence: CN)
  Receive Date: 20150917
  Receipt Date: 20150917
  Transmission Date: 20151125
  Serious: Yes (Other)
  Sender: FDA-Public Use
  Company Number: CN-TAKEDA-2015MPI006128

PATIENT

DRUGS (3)
  1. DEXAMETHASONE. [Suspect]
     Active Substance: DEXAMETHASONE
     Indication: AMYLOIDOSIS
     Dosage: 40 MG, UNK
     Route: 048
  2. OMEPRAZOLE. [Concomitant]
     Active Substance: OMEPRAZOLE
     Indication: PROPHYLAXIS
     Dosage: UNK
     Route: 065
  3. VELCADE [Suspect]
     Active Substance: BORTEZOMIB
     Indication: AMYLOIDOSIS
     Dosage: 1.3 MG/M2, UNK
     Route: 042

REACTIONS (12)
  - Neuropathy peripheral [Unknown]
  - Oedema [Unknown]
  - Infection [Unknown]
  - Thrombocytopenia [Unknown]
  - Neutropenia [Unknown]
  - Acute kidney injury [Unknown]
  - Hepatotoxicity [Unknown]
  - Herpes zoster [Unknown]
  - Gastrointestinal toxicity [Unknown]
  - Product use issue [Unknown]
  - Cardiotoxicity [Unknown]
  - Anaemia [Unknown]
